FAERS Safety Report 10274702 (Version 1)
Quarter: 2014Q3

REPORT INFORMATION
  Report Type: Spontaneous
  Country: US (occurrence: US)
  Receive Date: 20140702
  Receipt Date: 20140702
  Transmission Date: 20150326
  Serious: Yes (Congenital Anomaly, Other)
  Sender: FDA-Public Use
  Company Number: US-ABBVIE-14P-163-1252766-00

PATIENT
  Sex: Female

DRUGS (1)
  1. DEPAKOTE [Suspect]
     Active Substance: DIVALPROEX SODIUM
     Indication: MATERNAL EXPOSURE TIMING UNSPECIFIED
     Route: 064

REACTIONS (13)
  - Atrial septal defect [Unknown]
  - Congenital oral malformation [Unknown]
  - Congenital aortic stenosis [Unknown]
  - Tracheomalacia [Unknown]
  - Developmental delay [Unknown]
  - Aortic valve disease [Unknown]
  - Speech disorder developmental [Unknown]
  - Cardiomegaly [Unknown]
  - Patent ductus arteriosus [Unknown]
  - Activities of daily living impaired [Unknown]
  - Mental impairment [Unknown]
  - Foetal exposure during pregnancy [Unknown]
  - Deafness [Unknown]
